FAERS Safety Report 5536276-7 (Version None)
Quarter: 2007Q4

REPORT INFORMATION
  Report Type: 
  Country: None (occurrence: None)
  Receive Date: 20071206
  Receipt Date: 20071109
  Transmission Date: 20080405
  Serious: No
  Sender: FDA-Public Use
  Company Number: US-BOEHRINGER INGELHEIM PHARMACEUTICALS, INC.-2007-BP-24304BP

PATIENT
  Sex: Female

DRUGS (2)
  1. CLONIDINE HCL [Suspect]
     Indication: HYPERTENSION
     Route: 048
  2. AVAPRO [Concomitant]
     Route: 048

REACTIONS (2)
  - DRUG INEFFECTIVE [None]
  - HYPERTENSION [None]
